FAERS Safety Report 21093648 (Version 3)
Quarter: 2022Q4

REPORT INFORMATION
  Report Type: Report from Study
  Country: JP (occurrence: JP)
  Receive Date: 20220718
  Receipt Date: 20221107
  Transmission Date: 20230113
  Serious: Yes (Disabling, Other)
  Sender: FDA-Public Use
  Company Number: JP-ASTELLAS-2022JP006060

PATIENT
  Age: 75 Year
  Sex: Male

DRUGS (4)
  1. ENFORTUMAB VEDOTIN [Suspect]
     Active Substance: ENFORTUMAB VEDOTIN
     Indication: Transitional cell carcinoma
     Route: 065
     Dates: start: 20220112, end: 20220224
  2. ENFORTUMAB VEDOTIN [Suspect]
     Active Substance: ENFORTUMAB VEDOTIN
     Dosage: UNK, UNKNOWN FREQ.
     Route: 065
     Dates: start: 20220316, end: 20220316
  3. ENFORTUMAB VEDOTIN [Suspect]
     Active Substance: ENFORTUMAB VEDOTIN
     Dosage: 1.0 MG/KG
     Route: 065
     Dates: start: 20220323, end: 20220706
  4. CLOBETASOL [Concomitant]
     Active Substance: CLOBETASOL
     Indication: Skin disorder
     Dosage: UNK UNK, UNKNOWN FREQ.
     Route: 050

REACTIONS (5)
  - Erythema multiforme [Unknown]
  - Interstitial lung disease [Unknown]
  - Neuropathy peripheral [Not Recovered/Not Resolved]
  - Metastases to lung [Not Recovered/Not Resolved]
  - Skin disorder [Recovering/Resolving]

NARRATIVE: CASE EVENT DATE: 20220124
